FAERS Safety Report 16261686 (Version 1)
Quarter: 2019Q2

REPORT INFORMATION
  Report Type: Report from Study
  Country: ZA (occurrence: ZA)
  Receive Date: 20190501
  Receipt Date: 20190501
  Transmission Date: 20190711
  Serious: Yes (Hospitalization, Other)
  Sender: FDA-Public Use
  Company Number: ZA-GILEAD-2019-0404938

PATIENT
  Age: 25 Year
  Sex: Female

DRUGS (5)
  1. ALDOMET M [Concomitant]
     Active Substance: METHYLDOPA
  2. IRON [Concomitant]
     Active Substance: IRON
  3. EMTRICITABINE/TENOFOVIR DISOPROXIL FUMARATE [Suspect]
     Active Substance: EMTRICITABINE\TENOFOVIR DISOPROXIL FUMARATE
     Indication: PROPHYLAXIS AGAINST HIV INFECTION
     Dosage: 500 MG, QD
     Route: 048
     Dates: start: 20190326, end: 20190426
  4. FOLIC ACID. [Concomitant]
     Active Substance: FOLIC ACID
  5. CALCIUM [Concomitant]
     Active Substance: CALCIUM

REACTIONS (2)
  - Foetal death [Recovered/Resolved]
  - Maternal exposure during pregnancy [Recovered/Resolved]

NARRATIVE: CASE EVENT DATE: 20190326
